FAERS Safety Report 6712675-2 (Version None)
Quarter: 2010Q2

REPORT INFORMATION
  Report Type: 
  Country: None (occurrence: None)
  Receive Date: 20100505
  Receipt Date: 20100505
  Transmission Date: 20101027
  Serious: Yes (Life-Threatening)
  Sender: FDA-Public Use
  Company Number: None

PATIENT
  Sex: Female
  Weight: 62.5964 kg

DRUGS (2)
  1. LEVAQUIN [Suspect]
     Indication: PAIN
     Dosage: 5 DAYS
     Dates: start: 20091031
  2. CELEBREX [Suspect]
     Dosage: 2 DAYS
     Dates: start: 20100407

REACTIONS (7)
  - BURNING SENSATION [None]
  - DIARRHOEA [None]
  - FEELING COLD [None]
  - GASTRIC DISORDER [None]
  - OEDEMA PERIPHERAL [None]
  - PAIN IN EXTREMITY [None]
  - UNEVALUABLE EVENT [None]
